FAERS Safety Report 5877067-7 (Version None)
Quarter: 2008Q3

REPORT INFORMATION
  Report Type: 
  Country: None (occurrence: None)
  Receive Date: 20080909
  Receipt Date: 20080909
  Transmission Date: 20090109
  Serious: Yes (Other)
  Sender: FDA-Public Use
  Company Number: None

PATIENT
  Age: 42 Year
  Sex: Female
  Weight: 79.3795 kg

DRUGS (8)
  1. CYMBALTA [Suspect]
     Indication: TYPHOID FEVER
     Dosage: 60MG 1 TIME NIGHTLY PO
     Route: 048
     Dates: start: 20080821, end: 20080904
  2. CYMBALTA [Suspect]
     Indication: DRUG INEFFECTIVE
     Dates: start: 20080619, end: 20080820
  3. PREVACID [Concomitant]
  4. DHEA CR [Concomitant]
  5. PRAVASTATIN [Concomitant]
  6. CENTRUM MULTIVITIMIN [Concomitant]
  7. PROTHERA MARINE FISH OIL [Concomitant]
  8. PROGESTORONE CREAM [Concomitant]

REACTIONS (13)
  - AGITATION [None]
  - ANXIETY [None]
  - ARTHRALGIA [None]
  - CONDITION AGGRAVATED [None]
  - CRYING [None]
  - DEPRESSION [None]
  - DRUG INEFFECTIVE [None]
  - EMOTIONAL DISTRESS [None]
  - FATIGUE [None]
  - FEELING OF DESPAIR [None]
  - HEADACHE [None]
  - LETHARGY [None]
  - MYALGIA [None]
